FAERS Safety Report 7979905-0 (Version None)
Quarter: 2011Q4

REPORT INFORMATION
  Report Type: 
  Country: None (occurrence: None)
  Receive Date: 20111214
  Receipt Date: 20111212
  Transmission Date: 20120403
  Serious: Yes (Hospitalization, Other)
  Sender: FDA-Public Use
  Company Number: FR-ROCHE-779085

PATIENT
  Age: 54 Year
  Sex: Male

DRUGS (7)
  1. COPEGUS [Suspect]
     Route: 048
  2. COPEGUS [Suspect]
     Indication: HEPATITIS C
     Route: 048
  3. VITAMIN D [Concomitant]
  4. PEGINTERFERON ALFA-2A [Suspect]
     Indication: HEPATITIS C
     Route: 058
  5. PEGINTERFERON ALFA-2A [Suspect]
     Route: 058
  6. ACETAMINOPHEN [Concomitant]
  7. COPEGUS [Suspect]
     Dosage: DOSE; 6 TABLETS/ DAY
     Route: 048

REACTIONS (3)
  - SARCOIDOSIS [None]
  - LUNG DISORDER [None]
  - PERICARDITIS [None]
